FAERS Safety Report 23913113 (Version 3)
Quarter: 2024Q3

REPORT INFORMATION
  Report Type: Spontaneous
  Country: US (occurrence: US)
  Receive Date: 20240529
  Receipt Date: 20240712
  Transmission Date: 20241016
  Serious: No
  Sender: APOTEX
  Company Number: US-APOTEX-2024AP005577

PATIENT
  Sex: Female

DRUGS (2)
  1. CYCLOSPORINE [Suspect]
     Active Substance: CYCLOSPORINE
     Indication: Product used for unknown indication
     Dosage: 4 GTT DROPS, BID (2 DROPS IN EACH EYE TWICE A DAY MORNING AND NIGHT)
     Route: 047
  2. CYCLOSPORINE [Suspect]
     Active Substance: CYCLOSPORINE
     Dosage: 4 GTT DROPS, BID (2 DROPS IN EACH EYE TWICE A DAY MORNING AND NIGHT)
     Route: 047

REACTIONS (3)
  - Product substitution issue [Unknown]
  - Product packaging quantity issue [Unknown]
  - Drug ineffective [Unknown]
